FAERS Safety Report 4315090-4 (Version None)
Quarter: 2004Q1

REPORT INFORMATION
  Report Type: 
  Country: None (occurrence: None)
  Receive Date: 20040310
  Receipt Date: 20040303
  Transmission Date: 20041129
  Serious: Yes (Death)
  Sender: FDA-Public Use
  Company Number: JP-ROCHE-360523

PATIENT
  Age: 31 Year
  Sex: Male
  Weight: 70 kg

DRUGS (5)
  1. TAMIFLU [Suspect]
     Route: 048
     Dates: start: 20040224, end: 20040224
  2. LOXONIN [Concomitant]
     Route: 048
     Dates: start: 20040224, end: 20040224
  3. LEFTOSE [Concomitant]
     Route: 048
     Dates: start: 20040224, end: 20040224
  4. SOLON [Concomitant]
     Dosage: REPORTED AS 1 PACK BID
     Route: 048
     Dates: start: 20040224, end: 20040224
  5. METILON [Concomitant]
     Dosage: REPORTED AS 1A ONCE DAILY.
     Route: 030
     Dates: start: 20040224, end: 20040224

REACTIONS (7)
  - BLOOD POTASSIUM INCREASED [None]
  - CARDIO-RESPIRATORY ARREST [None]
  - HEPATIC ENZYME INCREASED [None]
  - PLATELET COUNT DECREASED [None]
  - PNEUMONIA VIRAL [None]
  - PULMONARY HAEMORRHAGE [None]
  - WHITE BLOOD CELL COUNT INCREASED [None]
